FAERS Safety Report 25104423 (Version 5)
Quarter: 2025Q2

REPORT INFORMATION
  Report Type: Report from Study
  Country: US (occurrence: US)
  Receive Date: 20250321
  Receipt Date: 20250516
  Transmission Date: 20250717
  Serious: Yes (Hospitalization, Other)
  Sender: ABBVIE
  Company Number: US-ABBVIE-6185869

PATIENT
  Age: 77 Year
  Sex: Male
  Weight: 120.2 kg

DRUGS (21)
  1. VENCLEXTA [Suspect]
     Active Substance: VENETOCLAX
     Indication: Non-Hodgkin^s lymphoma
     Dosage: 400 MILLIGRAM
     Route: 048
     Dates: start: 2018, end: 20241018
  2. VENCLEXTA [Suspect]
     Active Substance: VENETOCLAX
     Indication: Non-Hodgkin^s lymphoma
     Dosage: 400 MILLIGRAM
     Route: 048
     Dates: start: 20250306
  3. VENCLEXTA [Suspect]
     Active Substance: VENETOCLAX
     Indication: Non-Hodgkin^s lymphoma
     Dosage: 400 MILLIGRAM
     Route: 048
     Dates: start: 20241108, end: 20250214
  4. EYLEA [Concomitant]
     Active Substance: AFLIBERCEPT
     Indication: Macular degeneration
  5. EYLEA [Concomitant]
     Active Substance: AFLIBERCEPT
     Indication: Macular degeneration
  6. EYLEA [Concomitant]
     Active Substance: AFLIBERCEPT
     Indication: Macular degeneration
  7. EYLEA [Concomitant]
     Active Substance: AFLIBERCEPT
     Indication: Macular degeneration
  8. MABTHERA [Suspect]
     Active Substance: RITUXIMAB
     Indication: Chronic lymphocytic leukaemia
     Route: 042
  9. METHOTREXATE [Concomitant]
     Active Substance: METHOTREXATE
     Indication: Chronic lymphocytic leukaemia
  10. ASCORBIC ACID [Concomitant]
     Active Substance: ASCORBIC ACID
     Indication: Product used for unknown indication
  11. .ALPHA.-TOCOPHEROL ACETATE [Concomitant]
     Active Substance: .ALPHA.-TOCOPHEROL ACETATE
     Indication: Product used for unknown indication
  12. LUTEIN [Concomitant]
     Active Substance: LUTEIN
     Indication: Product used for unknown indication
  13. ZEAXANTHIN [Concomitant]
     Active Substance: ZEAXANTHIN
     Indication: Product used for unknown indication
  14. MINERALS\VITAMINS [Concomitant]
     Active Substance: MINERALS\VITAMINS
     Indication: Macular degeneration
     Route: 048
  15. MINERALS\VITAMINS [Concomitant]
     Active Substance: MINERALS\VITAMINS
     Indication: Macular degeneration
     Route: 048
     Dates: start: 2015
  16. ZINC [Concomitant]
     Active Substance: ZINC
     Indication: Macular degeneration
     Route: 048
     Dates: start: 2015
  17. VITAMIN B6 [Concomitant]
     Active Substance: PYRIDOXINE HYDROCHLORIDE
     Indication: Product used for unknown indication
  18. PYRIDOXINE HYDROCHLORIDE [Concomitant]
     Active Substance: PYRIDOXINE HYDROCHLORIDE
     Indication: Product used for unknown indication
     Route: 048
  19. CYANOCOBALAMIN\DEXPANTHENOL\NIACINAMIDE\PYRIDOXINE HYDROCHLORIDE\RIBOF [Concomitant]
     Active Substance: CYANOCOBALAMIN\DEXPANTHENOL\NIACINAMIDE\PYRIDOXINE HYDROCHLORIDE\RIBOFLAVIN 5^-PHOSPHATE SODIUM\THIA
     Indication: Product used for unknown indication
     Route: 048
     Dates: start: 2015
  20. VITAMIN D3 [Concomitant]
     Active Substance: CHOLECALCIFEROL
     Indication: Product used for unknown indication
  21. RITUXAN [Concomitant]
     Active Substance: RITUXIMAB
     Indication: Supplementation therapy
     Route: 048

REACTIONS (14)
  - Arthralgia [Recovering/Resolving]
  - Brain neoplasm malignant [Unknown]
  - Knee arthroplasty [Unknown]
  - Arthritis [Recovering/Resolving]
  - Knee arthroplasty [Unknown]
  - Body mass index increased [Not Recovered/Not Resolved]
  - Arthritis [Recovered/Resolved]
  - Arthritis [Recovered/Resolved]
  - Osteoarthritis [Recovered/Resolved]
  - Osteoarthritis [Recovered/Resolved]
  - Vision blurred [Unknown]
  - Balance disorder [Unknown]
  - Gait disturbance [Unknown]
  - Deafness [Unknown]

NARRATIVE: CASE EVENT DATE: 20220101
